FAERS Safety Report 5995844-9 (Version None)
Quarter: 2008Q4

REPORT INFORMATION
  Report Type: 
  Country: None (occurrence: None)
  Receive Date: 20081212
  Receipt Date: 20081210
  Transmission Date: 20090506
  Serious: Yes (Hospitalization)
  Sender: FDA-Public Use
  Company Number: US-B.I. PHARMACEUTICALS,INC./RIDGEFIELD-2008-BP-17949BP

PATIENT
  Sex: Female

DRUGS (7)
  1. SPIRIVA [Suspect]
     Indication: CHRONIC OBSTRUCTIVE PULMONARY DISEASE
     Dosage: 18MCG
     Route: 055
     Dates: start: 20060101
  2. PLAVIX [Suspect]
     Indication: CORONARY ARTERY DISEASE
     Route: 048
     Dates: start: 20050101, end: 20070501
  3. PLAVIX [Suspect]
     Indication: ANTICOAGULANT THERAPY
  4. PREDNISONE TAB [Suspect]
  5. LEVEMIR [Concomitant]
     Indication: DIABETES MELLITUS
     Route: 058
     Dates: start: 20080101
  6. WARFARIN SODIUM [Concomitant]
     Indication: ANTICOAGULANT THERAPY
     Route: 048
     Dates: start: 20080101
  7. WARFARIN SODIUM [Concomitant]
     Indication: CORONARY ARTERY DISEASE

REACTIONS (4)
  - CATARACT [None]
  - GASTRIC ULCER HAEMORRHAGE [None]
  - HIP FRACTURE [None]
  - SPINAL FRACTURE [None]
